FAERS Safety Report 14454389 (Version 1)
Quarter: 2018Q1

REPORT INFORMATION
  Report Type: Spontaneous
  Country: US (occurrence: US)
  Receive Date: 20180128
  Receipt Date: 20180128
  Transmission Date: 20180509
  Serious: Yes (Other)
  Sender: FDA-Public Use
  Company Number: None

PATIENT
  Age: 34 Year
  Sex: Female
  Weight: 61.65 kg

DRUGS (4)
  1. DIFLUCAN [Suspect]
     Active Substance: FLUCONAZOLE
     Indication: FUNGAL INFECTION
     Dosage: QUANTITY:1 TABLET(S);OTHER FREQUENCY:ONE DOSE;?
     Route: 048
     Dates: start: 20180112, end: 20180112
  2. DAILY MULTIVITAMIN [Concomitant]
     Active Substance: VITAMINS
  3. CLOBETASOL [Concomitant]
     Active Substance: CLOBETASOL
  4. PREDNISONE. [Concomitant]
     Active Substance: PREDNISONE

REACTIONS (2)
  - Drug hypersensitivity [None]
  - Erythema multiforme [None]

NARRATIVE: CASE EVENT DATE: 20180115
